FAERS Safety Report 7815714-0 (Version None)
Quarter: 2011Q4

REPORT INFORMATION
  Report Type: 
  Country: None (occurrence: None)
  Receive Date: 20111014
  Receipt Date: 20111010
  Transmission Date: 20120403
  Serious: Yes (Other)
  Sender: FDA-Public Use
  Company Number: NO-BRISTOL-MYERS SQUIBB COMPANY-16146169

PATIENT

DRUGS (7)
  1. CYCLOPHOSPHAMIDE [Suspect]
     Indication: HODGKIN'S DISEASE
     Route: 042
  2. BLEOMYCIN SULFATE [Suspect]
     Indication: HODGKIN'S DISEASE
     Route: 042
  3. DOXORUBICIN HCL [Suspect]
     Indication: HODGKIN'S DISEASE
     Route: 042
  4. ETOPOSIDE [Suspect]
     Indication: HODGKIN'S DISEASE
     Route: 042
  5. PROCARBAZINE HYDROCHLORIDE [Suspect]
     Indication: HODGKIN'S DISEASE
     Route: 048
  6. VINCRISTINE [Suspect]
     Indication: HODGKIN'S DISEASE
     Route: 042
  7. PREDNISOLONE [Suspect]
     Indication: HODGKIN'S DISEASE
     Dosage: ON DAYS 1 TO 14 IN EVERY 21 DAY CYCLE TREATMENT
     Route: 048

REACTIONS (1)
  - THROMBOSIS [None]
